FAERS Safety Report 17797679 (Version 1)
Quarter: 2020Q2

REPORT INFORMATION
  Report Type: Spontaneous
  Country: FI (occurrence: FI)
  Receive Date: 20200518
  Receipt Date: 20200518
  Transmission Date: 20200714
  Serious: Yes (Hospitalization)
  Sender: FDA-Public Use
  Company Number: FI-TEVA-2020-FI-1235522

PATIENT
  Age: 37 Year
  Sex: Female

DRUGS (1)
  1. ANTABUS [Suspect]
     Active Substance: DISULFIRAM
     Indication: ALCOHOL PROBLEM
     Dosage: 200 MILLIGRAM DAILY;
     Route: 048
     Dates: start: 20200122, end: 20200210

REACTIONS (5)
  - Decreased appetite [Not Recovered/Not Resolved]
  - Jaundice [Not Recovered/Not Resolved]
  - Hepatic failure [Not Recovered/Not Resolved]
  - Malaise [Not Recovered/Not Resolved]
  - Hepatic enzyme increased [Not Recovered/Not Resolved]

NARRATIVE: CASE EVENT DATE: 20200228
